FAERS Safety Report 7024267-9 (Version None)
Quarter: 2010Q4

REPORT INFORMATION
  Report Type: 
  Country: None (occurrence: None)
  Receive Date: 20101001
  Receipt Date: 20100920
  Transmission Date: 20110411
  Serious: Yes (Hospitalization)
  Sender: FDA-Public Use
  Company Number: US-ELI_LILLY_AND_COMPANY-US201009006587

PATIENT

DRUGS (3)
  1. GEMCITABINE HCL [Suspect]
     Indication: ADENOCARCINOMA PANCREAS
     Dosage: 750 MG/M2, OTHER
  2. DOCETAXEL [Concomitant]
     Indication: ADENOCARCINOMA PANCREAS
     Dosage: 30 MG/M2, OTHER
  3. CAPECITABINE [Concomitant]
     Indication: ADENOCARCINOMA PANCREAS
     Dosage: 1000 MG/M2, 2/D

REACTIONS (1)
  - HOSPITALISATION [None]
